FAERS Safety Report 12266933 (Version 1)
Quarter: 2016Q2

REPORT INFORMATION
  Report Type: Spontaneous
  Country: US (occurrence: US)
  Receive Date: 20160414
  Receipt Date: 20160414
  Transmission Date: 20160815
  Serious: No
  Sender: FDA-Public Use
  Company Number: US-BAYER-2016-070871

PATIENT
  Age: 81 Year
  Sex: Female
  Weight: 86.62 kg

DRUGS (7)
  1. FISH OIL [Concomitant]
     Active Substance: FISH OIL
  2. METOPROLOL. [Concomitant]
     Active Substance: METOPROLOL
  3. VITAMIN C [Concomitant]
     Active Substance: ASCORBIC ACID
  4. VITAMIN D [Concomitant]
     Active Substance: CHOLECALCIFEROL
  5. MIRALAX [Suspect]
     Active Substance: POLYETHYLENE GLYCOL 3350
     Indication: CONSTIPATION
     Dosage: 1 DF, QD
     Route: 048
     Dates: start: 2011
  6. CITRACAL [Concomitant]
     Active Substance: CALCIUM CITRATE
  7. IRON [Concomitant]
     Active Substance: IRON

REACTIONS (1)
  - Product use issue [None]
